FAERS Safety Report 10575978 (Version 1)
Quarter: 2014Q4

REPORT INFORMATION
  Report Type: Spontaneous
  Country: US (occurrence: None)
  Receive Date: 20141110
  Receipt Date: 20141110
  Transmission Date: 20150529
  Serious: No
  Sender: FDA-Public Use
  Company Number: None

PATIENT
  Age: 40 Year
  Sex: Female
  Weight: 68.04 kg

DRUGS (1)
  1. ESCITALOPRAM [Suspect]
     Active Substance: ESCITALOPRAM OXALATE
     Indication: DEPRESSION
     Route: 048
     Dates: start: 20131101, end: 20131130

REACTIONS (5)
  - Drug ineffective [None]
  - Product quality issue [None]
  - Product substitution issue [None]
  - Sedation [None]
  - Headache [None]

NARRATIVE: CASE EVENT DATE: 20141101
